FAERS Safety Report 8931977 (Version 1)
Quarter: 2012Q4

REPORT INFORMATION
  Report Type: 
  Country: JP (occurrence: JP)
  Receive Date: 20121128
  Receipt Date: 20121128
  Transmission Date: 20130627
  Serious: Yes (Other)
  Sender: FDA-Public Use
  Company Number: JP-MYLANLABS-2012S1023757

PATIENT
  Sex: Female

DRUGS (2)
  1. CARBOPLATIN [Suspect]
     Indication: UTERINE CANCER
     Route: 041
  2. PACLITAXEL [Suspect]
     Indication: UTERINE CANCER
     Route: 041

REACTIONS (1)
  - Cystitis haemorrhagic [Unknown]
